FAERS Safety Report 9812397 (Version 2)
Quarter: 2014Q3

REPORT INFORMATION
  Report Type: Spontaneous
  Country: US (occurrence: US)
  Receive Date: 20140113
  Receipt Date: 20140709
  Transmission Date: 20150326
  Serious: No
  Sender: FDA-Public Use
  Company Number: US-BIOGENIDEC-2014BI000221

PATIENT
  Sex: Female

DRUGS (1)
  1. TYSABRI [Suspect]
     Active Substance: NATALIZUMAB
     Indication: MULTIPLE SCLEROSIS
     Route: 042
     Dates: start: 20130107, end: 20140529

REACTIONS (14)
  - Blindness [Not Recovered/Not Resolved]
  - Fatigue [Not Recovered/Not Resolved]
  - Polyuria [Not Recovered/Not Resolved]
  - Screaming [Unknown]
  - Anxiety [Unknown]
  - Pain [Not Recovered/Not Resolved]
  - Abasia [Not Recovered/Not Resolved]
  - Frequent bowel movements [Not Recovered/Not Resolved]
  - Malaise [Not Recovered/Not Resolved]
  - Mental impairment [Not Recovered/Not Resolved]
  - Hypoaesthesia [Not Recovered/Not Resolved]
  - Fall [Recovered/Resolved]
  - Dizziness [Not Recovered/Not Resolved]
  - Gait disturbance [Not Recovered/Not Resolved]
